FAERS Safety Report 13184385 (Version 2)
Quarter: 2017Q3

REPORT INFORMATION
  Report Type: Spontaneous
  Country: GB (occurrence: GB)
  Receive Date: 20170203
  Receipt Date: 20170725
  Transmission Date: 20171127
  Serious: Yes (Hospitalization, Other)
  Sender: FDA-Public Use
  Company Number: GB-AUROBINDO-AUR-APL-2017-28207

PATIENT
  Sex: Male

DRUGS (2)
  1. CEFALEXIN 500MG TABLETS BP [Suspect]
     Active Substance: CEPHALEXIN
     Dosage: 500 MG (3 TABLETS)
     Route: 065
     Dates: start: 20161230
  2. CEFALEXIN 500MG TABLETS BP [Suspect]
     Active Substance: CEPHALEXIN
     Indication: PRODUCT USED FOR UNKNOWN INDICATION
     Dosage: 500 MG (1 TABLET)
     Route: 065
     Dates: start: 20161229, end: 20161230

REACTIONS (1)
  - Constipation [Unknown]

NARRATIVE: CASE EVENT DATE: 20161231
